FAERS Safety Report 9257514 (Version 1)
Quarter: 2013Q1

REPORT INFORMATION
  Report Type: Spontaneous
  Country: US (occurrence: None)
  Receive Date: 20121212
  Receipt Date: 20121212
  Transmission Date: 20140127
  Serious: No
  Sender: FDA-Public Use
  Company Number: 1209USA007270

PATIENT
  Age: 50 Year
  Sex: Male

DRUGS (3)
  1. PEGINTERFERON ALFA-2B [Suspect]
     Indication: HEPATITIS C
     Dates: start: 20120307
  2. REBETOL [Suspect]
     Indication: HEPATITIS C
     Dates: start: 20120307
  3. VICTRELIS [Suspect]
     Indication: HEPATITIS C
     Dates: start: 20120411

REACTIONS (8)
  - Fatigue [None]
  - Decreased appetite [None]
  - Dyspnoea [None]
  - Pyrexia [None]
  - Chills [None]
  - Dysgeusia [None]
  - Memory impairment [None]
  - Bone pain [None]
